FAERS Safety Report 4496787-2 (Version None)
Quarter: 2004Q4

REPORT INFORMATION
  Report Type: 
  Country: None (occurrence: None)
  Receive Date: 20041109
  Receipt Date: 20041104
  Transmission Date: 20050328
  Serious: Yes (Life-Threatening, Disabling)
  Sender: FDA-Public Use
  Company Number: US-MERCK-0411USA00740

PATIENT
  Age: 15 Year
  Sex: Female

DRUGS (1)
  1. VIOXX [Suspect]
     Indication: SPONDYLOARTHROPATHY
     Route: 048

REACTIONS (1)
  - ASTHMA [None]
